FAERS Safety Report 17974572 (Version 2)
Quarter: 2020Q3

REPORT INFORMATION
  Report Type: Spontaneous
  Country: JP (occurrence: JP)
  Receive Date: 20200702
  Receipt Date: 20200728
  Transmission Date: 20201103
  Serious: Yes (Death)
  Sender: FDA-Public Use
  Company Number: JP-JNJFOC-20200633585

PATIENT
  Age: 47 Year
  Sex: Female
  Weight: 71 kg

DRUGS (12)
  1. XEPLION [Suspect]
     Active Substance: PALIPERIDONE PALMITATE
     Indication: SCHIZOPHRENIA
     Route: 030
     Dates: end: 20200502
  2. DEPAKENE?R [Concomitant]
     Active Substance: VALPROATE SODIUM
     Dosage: PERORAL MEDICINE
     Route: 048
  3. BIPERIDEN HYDROCHLORIDE [Concomitant]
     Active Substance: BIPERIDEN HYDROCHLORIDE
     Dosage: PERORAL MEDICINE
     Route: 048
  4. PURSENNID                          /00142207/ [Concomitant]
     Active Substance: SENNA LEAF
     Dosage: PERORAL MEDICINE
     Route: 048
  5. YOKUKANSAN [Concomitant]
     Active Substance: HERBALS
     Dosage: PERORAL MEDICINE
     Route: 048
  6. LENDORMIN [Concomitant]
     Active Substance: BROTIZOLAM
     Dosage: PERORAL MEDICINE
     Route: 048
  7. WYPAX [Concomitant]
     Active Substance: LORAZEPAM
     Dosage: PERORAL MEDICINE
     Route: 048
  8. SILECE [Concomitant]
     Active Substance: FLUNITRAZEPAM
     Dosage: PERORAL MEDICINE
     Route: 048
  9. LONASEN [Concomitant]
     Active Substance: BLONANSERIN
     Dosage: PERORAL MEDICINE
     Route: 048
  10. XEPLION [Suspect]
     Active Substance: PALIPERIDONE PALMITATE
     Dosage: OFF?LABEL USE 11 PALIPERIDONE PALMITATE:25MG
     Route: 030
     Dates: start: 20200328, end: 20200328
  11. XEPLION [Suspect]
     Active Substance: PALIPERIDONE PALMITATE
     Dosage: OFF?LABEL USE 11 PALIPERIDONE PALMITATE:25MG
     Route: 030
     Dates: start: 20200404, end: 20200404
  12. CARBAMAZEPINE. [Concomitant]
     Active Substance: CARBAMAZEPINE
     Dosage: PERORAL MEDICINE
     Route: 048

REACTIONS (3)
  - Death [Fatal]
  - Off label use [Unknown]
  - Product administered at inappropriate site [Unknown]

NARRATIVE: CASE EVENT DATE: 20200328
